FAERS Safety Report 5114258-7 (Version None)
Quarter: 2006Q3

REPORT INFORMATION
  Report Type: 
  Country: None (occurrence: None)
  Receive Date: 20060802
  Receipt Date: 20060615
  Transmission Date: 20061208
  Serious: No
  Sender: FDA-Public Use
  Company Number: 200615475US

PATIENT
  Age: 67 Year
  Sex: Female

DRUGS (1)
  1. KETEK [Suspect]
     Indication: PHARYNGOLARYNGEAL PAIN
     Dosage: 400 MG BID PO
     Route: 048
     Dates: start: 20060523, end: 20060526

REACTIONS (2)
  - ABDOMINAL PAIN UPPER [None]
  - DIARRHOEA [None]
